FAERS Safety Report 9178129 (Version 1)
Quarter: 2013Q1

REPORT INFORMATION
  Report Type: Spontaneous
  Country: US (occurrence: US)
  Receive Date: 20130321
  Receipt Date: 20130321
  Transmission Date: 20140127
  Serious: Yes (Hospitalization)
  Sender: FDA-Public Use
  Company Number: US-ASTRAZENECA-2013SE16537

PATIENT
  Age: 48 Year
  Sex: Male
  Weight: 77.1 kg

DRUGS (3)
  1. CRESTOR [Suspect]
     Indication: BLOOD CHOLESTEROL ABNORMAL
     Dosage: DAILY
     Route: 048
  2. BRILINTA [Suspect]
     Indication: STENT PLACEMENT
     Dosage: BID
     Route: 048
     Dates: start: 2012
  3. ASPIRIN [Suspect]
     Route: 065

REACTIONS (7)
  - Bleeding time prolonged [Unknown]
  - Ulcer haemorrhage [Unknown]
  - Arthropod sting [Unknown]
  - Ear swelling [Unknown]
  - Blood pressure increased [Unknown]
  - Nodule [Recovering/Resolving]
  - Musculoskeletal discomfort [Unknown]
